FAERS Safety Report 6274641-3 (Version None)
Quarter: 2009Q3

REPORT INFORMATION
  Report Type: 
  Country: None (occurrence: None)
  Receive Date: 20090720
  Receipt Date: 20090713
  Transmission Date: 20100115
  Serious: Yes (Hospitalization)
  Sender: FDA-Public Use
  Company Number: CA-BAXTER-2009BH009787

PATIENT

DRUGS (2)
  1. POTASSIUM CHLORIDE/DEXTROSE/SODIUM CHLORIDE [Suspect]
     Indication: DRUG USE FOR UNKNOWN INDICATION
     Route: 042
     Dates: start: 20090605, end: 20090601
  2. POTASSIUM CHLORIDE/DEXTROSE/SODIUM CHLORIDE [Suspect]
     Route: 042
     Dates: start: 20090605, end: 20090601

REACTIONS (1)
  - BLOOD PHOSPHORUS INCREASED [None]
